FAERS Safety Report 10095322 (Version 1)
Quarter: 2014Q2

REPORT INFORMATION
  Report Type: Spontaneous
  Country: ZA (occurrence: ZA)
  Receive Date: 20140422
  Receipt Date: 20140422
  Transmission Date: 20141212
  Serious: Yes (Hospitalization)
  Sender: FDA-Public Use
  Company Number: ZA-B.I. PHARMACEUTICALS,INC./RIDGEFIELD-2014-BI-17475ZA

PATIENT
  Age: 70 Year
  Sex: Female

DRUGS (3)
  1. PEXOLA [Suspect]
     Indication: RESTLESS LEGS SYNDROME
     Dosage: 0.5 MG
     Route: 048
     Dates: start: 20100503, end: 20140320
  2. YELATE (DULOXETINE) [Concomitant]
     Route: 065
     Dates: end: 20140320
  3. SEREZ (QUETIAPINE) [Concomitant]
     Route: 065
     Dates: end: 20140320

REACTIONS (7)
  - Intentional self-injury [Recovered/Resolved]
  - Emotional distress [Recovered/Resolved]
  - Dementia [Unknown]
  - Obsessive-compulsive disorder [Unknown]
  - Depression [Unknown]
  - Bipolar I disorder [Unknown]
  - Urinary tract infection [Unknown]
